FAERS Safety Report 9695347 (Version 1)
Quarter: 2013Q4

REPORT INFORMATION
  Report Type: Spontaneous
  Country: US (occurrence: None)
  Receive Date: 20131118
  Receipt Date: 20131118
  Transmission Date: 20140711
  Serious: Yes (Disabling)
  Sender: FDA-Public Use
  Company Number: None

PATIENT
  Age: 49 Year
  Sex: Male
  Weight: 136.08 kg

DRUGS (1)
  1. LEVOFLOXACIN 500MG WALGREENS [Suspect]
     Indication: INFECTION PROPHYLAXIS
     Dosage: LIQUID IV ONCE DAILY INTO A VEIN
     Route: 042
     Dates: start: 20080125, end: 20080203

REACTIONS (2)
  - Pain in extremity [None]
  - Neuropathy peripheral [None]
